FAERS Safety Report 11062486 (Version 1)
Quarter: 2015Q2

REPORT INFORMATION
  Report Type: Spontaneous
  Country: US (occurrence: None)
  Receive Date: 20150423
  Receipt Date: 20150423
  Transmission Date: 20150821
  Serious: Yes (Other)
  Sender: FDA-Public Use
  Company Number: None

PATIENT
  Age: 58 Year
  Sex: Female
  Weight: 111.13 kg

DRUGS (1)
  1. ANASTROZOLE 1 MG [Suspect]
     Active Substance: ANASTROZOLE
     Indication: OESTROGEN RECEPTOR POSITIVE BREAST CANCER
     Dosage: BY MOUTH
     Dates: start: 201301

REACTIONS (6)
  - Vomiting [None]
  - Nausea [None]
  - Fatigue [None]
  - Headache [None]
  - Bone pain [None]
  - Product substitution issue [None]
